FAERS Safety Report 25715698 (Version 1)
Quarter: 2025Q3

REPORT INFORMATION
  Report Type: Spontaneous
  Country: US (occurrence: US)
  Receive Date: 20250822
  Receipt Date: 20250822
  Transmission Date: 20251021
  Serious: No
  Sender: BAYER HEALTHCARE PHARMACEUTICALS INC.
  Company Number: US-BAYER-2025A110617

PATIENT
  Age: 36 Year
  Sex: Female

DRUGS (2)
  1. MIRENA [Suspect]
     Active Substance: LEVONORGESTREL
     Indication: Intrauterine contraception
     Dosage: 20?G/DAY
     Route: 015
     Dates: start: 201808
  2. TREMFYA [Concomitant]
     Active Substance: GUSELKUMAB

REACTIONS (3)
  - Pruritus [None]
  - Ear pruritus [None]
  - Stress at work [None]

NARRATIVE: CASE EVENT DATE: 20250701
